FAERS Safety Report 9425345 (Version 2)
Quarter: 2014Q1

REPORT INFORMATION
  Report Type: Spontaneous
  Country: US (occurrence: US)
  Receive Date: 20130729
  Receipt Date: 20140103
  Transmission Date: 20141002
  Serious: Yes (Death, Other)
  Sender: FDA-Public Use
  Company Number: US-BRISTOL-MYERS SQUIBB COMPANY-19143619

PATIENT
  Age: 81 Year
  Sex: Male

DRUGS (9)
  1. BYETTA PEN DISPOSABLE [Suspect]
     Dosage: INJECTION
     Dates: start: 20090102, end: 20110617
  2. METFORMIN [Concomitant]
  3. SIMVASTATIN [Concomitant]
  4. QUINAPRIL [Concomitant]
  5. PLAVIX [Concomitant]
  6. PREVACID [Concomitant]
  7. TOPROL [Concomitant]
  8. IRON [Concomitant]
  9. HYDROXYZINE [Concomitant]

REACTIONS (2)
  - Pancreatic carcinoma [Fatal]
  - Metastases to liver [Unknown]
